FAERS Safety Report 8905482 (Version 2)
Quarter: 2012Q4

REPORT INFORMATION
  Report Type: Report from Study
  Country: DE (occurrence: DE)
  Receive Date: 20121111
  Receipt Date: 20121212
  Transmission Date: 20130627
  Serious: Yes (Death, Hospitalization)
  Sender: FDA-Public Use
  Company Number: PHHY2012DE051418

PATIENT
  Age: 62 Year
  Sex: Male
  Weight: 80 kg

DRUGS (6)
  1. AFINITOR [Suspect]
     Indication: RENAL CELL CARCINOMA
     Dosage: 10 mg, daily
     Route: 048
     Dates: start: 20110429, end: 20110814
  2. HYDROCORTISON [Concomitant]
     Indication: ADRENAL INSUFFICIENCY
     Dosage: 30 mg/day
     Route: 048
     Dates: start: 200806, end: 20111031
  3. RAMIPRIL [Concomitant]
     Indication: HYPERTENSION
     Dosage: 5 mg/day
     Route: 048
     Dates: start: 2004, end: 20111031
  4. ALLOPURINOL [Concomitant]
     Indication: HYPERURICAEMIA
     Dosage: 100 mg/day
     Route: 048
     Dates: start: 2006, end: 20111031
  5. PALLADON [Concomitant]
     Indication: PAIN
     Dosage: 8 mg/day
     Route: 048
     Dates: start: 201109, end: 20111031
  6. MOVICOL [Concomitant]
     Indication: CONSTIPATION
     Dosage: two bags per day
     Route: 048
     Dates: start: 201109, end: 20111031

REACTIONS (8)
  - Pneumonia [Fatal]
  - General physical health deterioration [Fatal]
  - Pyrexia [Fatal]
  - Pain [Fatal]
  - Neoplasm progression [Fatal]
  - Malignant neoplasm progression [Fatal]
  - Cholangitis [Fatal]
  - Tumour associated fever [Unknown]
